FAERS Safety Report 21080444 (Version 1)
Quarter: 2022Q3

REPORT INFORMATION
  Report Type: Spontaneous
  Country: US (occurrence: US)
  Receive Date: 20220714
  Receipt Date: 20220714
  Transmission Date: 20221027
  Serious: No
  Sender: FDA-Public Use
  Company Number: US-RECKITT BENCKISER HEALTHCARE INT LIMITED-RB-086352-2022

PATIENT
  Age: 36 Year
  Sex: Female

DRUGS (1)
  1. MUCINEX FAST-MAX DM MAX [Suspect]
     Active Substance: DEXTROMETHORPHAN HYDROBROMIDE\GUAIFENESIN
     Indication: Product used for unknown indication
     Dosage: UNKNOWN, SINGLE
     Route: 065
     Dates: start: 20220302, end: 202203

REACTIONS (3)
  - Dyspnoea [Recovered/Resolved]
  - Feeling drunk [Recovered/Resolved]
  - Dizziness [Recovered/Resolved]

NARRATIVE: CASE EVENT DATE: 20220302
